FAERS Safety Report 17990629 (Version 2)
Quarter: 2020Q4

REPORT INFORMATION
  Report Type: Report from Study
  Country: US (occurrence: US)
  Receive Date: 20200707
  Receipt Date: 20201009
  Transmission Date: 20210113
  Serious: No
  Sender: FDA-Public Use
  Company Number: NVSC2020US181467

PATIENT
  Sex: Female

DRUGS (2)
  1. GILENYA [Suspect]
     Active Substance: FINGOLIMOD HYDROCHLORIDE
     Dosage: 0.5 MG
     Route: 048
  2. GILENYA [Suspect]
     Active Substance: FINGOLIMOD HYDROCHLORIDE
     Indication: MULTIPLE SCLEROSIS
     Dosage: 0.5 MG, QD
     Route: 048
     Dates: start: 20181128

REACTIONS (9)
  - Nervousness [Unknown]
  - Headache [Unknown]
  - Alopecia [Unknown]
  - Dizziness [Unknown]
  - Dyspnoea [Unknown]
  - Anxiety [Unknown]
  - Cognitive disorder [Unknown]
  - Feeling abnormal [Unknown]
  - Wrong dose [Unknown]
